FAERS Safety Report 9461171 (Version 1)
Quarter: 2013Q3

REPORT INFORMATION
  Report Type: Spontaneous
  Country: US (occurrence: None)
  Receive Date: 20130814
  Receipt Date: 20130814
  Transmission Date: 20140515
  Serious: No
  Sender: FDA-Public Use
  Company Number: None

PATIENT
  Age: 46 Year
  Sex: Female
  Weight: 105.64 kg

DRUGS (2)
  1. LEVOTHYROXINE [Suspect]
     Dates: start: 20110701, end: 20110916
  2. SYNTHROID [Concomitant]

REACTIONS (1)
  - Therapy change [None]
